FAERS Safety Report 14227909 (Version 2)
Quarter: 2017Q4

REPORT INFORMATION
  Report Type: Spontaneous
  Country: AU (occurrence: AU)
  Receive Date: 20171127
  Receipt Date: 20171130
  Transmission Date: 20180321
  Serious: Yes (Other)
  Sender: FDA-Public Use
  Company Number: AU-MALLINCKRODT-T201704628

PATIENT
  Age: 43 Year
  Sex: Male

DRUGS (1)
  1. UVADEX [Suspect]
     Active Substance: METHOXSALEN
     Indication: GRAFT VERSUS HOST DISEASE
     Dosage: UNK
     Route: 057

REACTIONS (1)
  - Anaphylactic reaction [Recovered/Resolved]
